FAERS Safety Report 24608926 (Version 1)
Quarter: 2024Q4

REPORT INFORMATION
  Report Type: Spontaneous
  Country: JP (occurrence: JP)
  Receive Date: 20241112
  Receipt Date: 20241112
  Transmission Date: 20250114
  Serious: Yes (Other)
  Sender: ELI LILLY AND COMPANY
  Company Number: JP-ELI_LILLY_AND_COMPANY-JP202411000017

PATIENT
  Sex: Male

DRUGS (2)
  1. INSULIN GLARGINE [Suspect]
     Active Substance: INSULIN GLARGINE
     Indication: Product used for unknown indication
     Route: 058
  2. APIDRA [Concomitant]
     Active Substance: INSULIN GLULISINE

REACTIONS (4)
  - Suicide attempt [Unknown]
  - Blood glucose decreased [Unknown]
  - Loss of consciousness [Recovered/Resolved]
  - Extra dose administered [Unknown]
